FAERS Safety Report 5525337-4 (Version None)
Quarter: 2007Q4

REPORT INFORMATION
  Report Type: 
  Country: None (occurrence: None)
  Receive Date: 20071119
  Receipt Date: 20071106
  Transmission Date: 20080405
  Serious: Yes (Hospitalization)
  Sender: FDA-Public Use
  Company Number: 17739

PATIENT
  Age: 76 Year
  Sex: Female

DRUGS (15)
  1. PAMIDRONATE DISODIUM [Suspect]
     Indication: HYPERCALCAEMIA
     Dosage: 30 MG ALT_DAYS IV
     Route: 042
     Dates: start: 20071018, end: 20071020
  2. SODIUM PICOSULFATE [Concomitant]
  3. AMOXICILLIN + CLAVULANATE POTASSIUM [Concomitant]
  4. FYBOGEL [Concomitant]
  5. DIAZEPAM [Concomitant]
  6. CO-CODAMOL [Concomitant]
  7. MOVICOL /01053601/ [Concomitant]
  8. UNIROID [Concomitant]
  9. CETIRIZINE HCL [Concomitant]
  10. ARICEPT. MFR: NOT SPECIFIED [Concomitant]
  11. CANESTEN. MFR: NOT SPECIFIED [Concomitant]
  12. ANUSOL /00117301/ [Concomitant]
  13. CAMCOLIT. MFR: NOT SPECIFIED [Concomitant]
  14. LYRINEL. MFR: NOT SPECIFIED [Concomitant]
  15. LACRI-LUBE. MFR: NOT SPECIFIED [Concomitant]

REACTIONS (3)
  - ANTIPSYCHOTIC DRUG LEVEL INCREASED [None]
  - HYPERNATRAEMIA [None]
  - RENAL IMPAIRMENT [None]
